FAERS Safety Report 4959217-X (Version None)
Quarter: 2006Q1

REPORT INFORMATION
  Report Type: 
  Country: None (occurrence: None)
  Receive Date: 20060331
  Receipt Date: 20060320
  Transmission Date: 20060701
  Serious: Yes (Other)
  Sender: FDA-Public Use
  Company Number: US-AMGEN-KDL169128

PATIENT
  Sex: Female
  Weight: 50.4 kg

DRUGS (6)
  1. ARANESP [Suspect]
     Indication: HEPATITIS C
     Dates: start: 20050301
  2. INTERFERON [Concomitant]
  3. REBETOL [Concomitant]
     Dates: start: 20050201
  4. PEGASYS [Concomitant]
     Dates: start: 20050601
  5. INFERGEN [Concomitant]
     Dates: start: 20050201
  6. NEUPOGEN [Concomitant]
     Dates: start: 20050201

REACTIONS (4)
  - DRUG INEFFECTIVE [None]
  - PORPHYRIA NON-ACUTE [None]
  - SERUM FERRITIN INCREASED [None]
  - THERAPY NON-RESPONDER [None]
